FAERS Safety Report 12828986 (Version 1)
Quarter: 2016Q4

REPORT INFORMATION
  Report Type: Spontaneous
  Country: US (occurrence: US)
  Receive Date: 20161007
  Receipt Date: 20161007
  Transmission Date: 20170207
  Serious: No
  Sender: FDA-Public Use
  Company Number: US-SA-2016SA036406

PATIENT
  Age: 59 Year
  Sex: Female

DRUGS (2)
  1. AUBAGIO [Suspect]
     Active Substance: TERIFLUNOMIDE
     Dosage: AUBAGIO 14MG
     Route: 065
     Dates: start: 201509
  2. AUBAGIO [Suspect]
     Active Substance: TERIFLUNOMIDE
     Dosage: AUBAGIO 7MG
     Route: 065
     Dates: end: 201510

REACTIONS (2)
  - Respiratory disorder [Recovered/Resolved]
  - Abdominal pain [Recovered/Resolved]

NARRATIVE: CASE EVENT DATE: 2015
